FAERS Safety Report 8824572 (Version 4)
Quarter: 2013Q1

REPORT INFORMATION
  Report Type: Spontaneous
  Country: US (occurrence: US)
  Receive Date: 20121004
  Receipt Date: 20130114
  Transmission Date: 20140127
  Serious: No
  Sender: FDA-Public Use
  Company Number: US-009507513-1209USA010545

PATIENT
  Age: 28 None
  Sex: Female
  Weight: 42.63 kg

DRUGS (3)
  1. IMPLANON [Suspect]
     Indication: CONTRACEPTION
     Dosage: 1 DF, UNK
     Route: 058
     Dates: start: 20120529, end: 20120927
  2. IMPLANON [Suspect]
     Dosage: 1 DF, UNK
     Route: 059
     Dates: end: 20120529
  3. IMPLANON [Suspect]
     Dosage: UNK
     Dates: start: 2012

REACTIONS (5)
  - Cellulitis [Unknown]
  - Induration [Unknown]
  - Implant site infection [Recovered/Resolved]
  - Implant site inflammation [Unknown]
  - Drug administered at inappropriate site [Unknown]
